FAERS Safety Report 10732611 (Version 1)
Quarter: 2015Q1

REPORT INFORMATION
  Report Type: Spontaneous
  Country: FR (occurrence: None)
  Receive Date: 20150120
  Receipt Date: 20150120
  Transmission Date: 20150721
  Serious: Yes (Hospitalization)
  Sender: FDA-Public Use
  Company Number: FK201402656

PATIENT
  Age: 81 Year
  Sex: Female

DRUGS (9)
  1. LAROSCORBINE [Suspect]
     Active Substance: ASCORBIC ACID
     Indication: PRODUCT USED FOR UNKNOWN INDICATION
     Dosage: 1 DOSAGE FORMS, INTRAVNEOUS (NOT OTHERWISE SPECIFIED)
     Route: 042
     Dates: start: 20140609, end: 20140611
  2. NONAN [Suspect]
     Active Substance: MINERALS
     Indication: PRODUCT USED FOR UNKNOWN INDICATION
     Route: 042
     Dates: start: 20140609, end: 20140611
  3. PYRIDOXINE CHLORHYDRATE [Suspect]
     Active Substance: PYRIDOXINE HYDROCHLORIDE
     Indication: PRODUCT USED FOR UNKNOWN INDICATION
     Dosage: 2 DOSAGE FORMS, INTRAVNEOUS (NOT OTHERWISE SPECIFIED)
     Route: 042
     Dates: start: 20140609, end: 20140609
  4. SULFATE DE MAGNESIUM PROMP (MAGNESIUM SULFATE) [Suspect]
     Active Substance: MAGNESIUM SULFATE
     Indication: MINERAL SUPPLEMENTATION
     Route: 042
     Dates: start: 20140609, end: 20140611
  5. KABIVEN [Suspect]
     Active Substance: AMINO ACIDS\ANHYDROUS DEXTROSE\CALCIUM CHLORIDE\MAGNESIUM SULFATE HEPTAHYDRATE\POTASSIUM CHLORIDE\SODIUM ACETATE\SODIUM GLYCEROPHOSPHATE ANHYDROUS\SOYBEAN OIL
     Indication: PARENTERAL NUTRITION
     Route: 042
     Dates: start: 20140609, end: 20140611
  6. CALCIUM GLUCONATE (CALCIUM GLUCONATE) [Suspect]
     Active Substance: CALCIUM GLUCONATE
     Indication: PRODUCT USED FOR UNKNOWN INDICATION
     Dosage: 2 GM, 1 IN 1 D, INTRANVEOUS (NOT OTHERWISE SPECIFIED)
     Route: 042
     Dates: start: 20140609, end: 20140611
  7. POLINATE DE CALCIUM SANDOZ [Suspect]
     Active Substance: LEUCOVORIN CALCIUM
     Indication: MINERAL SUPPLEMENTATION
     Route: 042
  8. BEVITINE(THIAMINE HYDROCHLORIDE)(THIAMINE HYDROCHLORIDE) [Suspect]
     Active Substance: THIAMINE HYDROCHLORIDE
     Indication: PRODUCT USED FOR UNKNOWN INDICATION
     Dosage: 2 DOSAGE FORMS, 100 MG/ 2ML, INTRAVENOUS (NOT OTHERWISE SPECIFED)
     Route: 042
     Dates: start: 20140609, end: 20140609
  9. CERNEVIT [Suspect]
     Active Substance: VITAMINS
     Indication: PRODUCT USED FOR UNKNOWN INDICATION
     Dosage: 1 DOSAGE FORMS, 1 IN 1 D, INTRANVEOUS (NOT OTHERWISE SPECIFIED)
     Route: 042
     Dates: start: 20140609, end: 20140611

REACTIONS (1)
  - Lymphangitis [None]

NARRATIVE: CASE EVENT DATE: 20140609
